FAERS Safety Report 19086800 (Version 2)
Quarter: 2021Q2

REPORT INFORMATION
  Report Type: Spontaneous
  Country: US (occurrence: US)
  Receive Date: 20210402
  Receipt Date: 20210427
  Transmission Date: 20210717
  Serious: No
  Sender: FDA-Public Use
  Company Number: NVSC2021US072561

PATIENT
  Sex: Female

DRUGS (2)
  1. PATADAY [Suspect]
     Active Substance: OLOPATADINE HYDROCHLORIDE
     Indication: OCULAR HYPERAEMIA
     Dosage: 1 DRP, QD
     Route: 065
     Dates: start: 20210328
  2. PATADAY [Suspect]
     Active Substance: OLOPATADINE HYDROCHLORIDE
     Indication: EYE PRURITUS
     Dosage: 1 DRP, QD
     Route: 065
     Dates: start: 20210321

REACTIONS (3)
  - Eye irritation [Not Recovered/Not Resolved]
  - Eye pruritus [Unknown]
  - Vision blurred [Not Recovered/Not Resolved]
